FAERS Safety Report 24116571 (Version 1)
Quarter: 2024Q3

REPORT INFORMATION
  Report Type: Spontaneous
  Country: US (occurrence: US)
  Receive Date: 20240722
  Receipt Date: 20240722
  Transmission Date: 20241017
  Serious: No
  Sender: ASTELLAS
  Company Number: US-ASTELLAS-2024US003978

PATIENT
  Age: 90 Year
  Sex: Male

DRUGS (1)
  1. MYRBETRIQ [Suspect]
     Active Substance: MIRABEGRON
     Indication: Product used for unknown indication
     Route: 065
     Dates: end: 202401

REACTIONS (6)
  - Ageusia [Recovered/Resolved]
  - Anosmia [Recovered/Resolved]
  - Dry mouth [Unknown]
  - Urinary tract infection [Unknown]
  - Calculus urinary [Unknown]
  - Tongue rough [Recovering/Resolving]
